FAERS Safety Report 13191200 (Version 1)
Quarter: 2017Q1

REPORT INFORMATION
  Report Type: Spontaneous
  Country: US (occurrence: US)
  Receive Date: 20170207
  Receipt Date: 20170207
  Transmission Date: 20170428
  Serious: No
  Sender: FDA-Public Use
  Company Number: US-AUROBINDO-AUR-APL-2016-04926

PATIENT
  Sex: Male
  Weight: 11.34 kg

DRUGS (1)
  1. AMOXICILLIN+CLAVULANIC ACID ORAL SUSPENSION [Suspect]
     Active Substance: AMOXICILLIN\CLAVULANIC ACID
     Indication: EAR INFECTION
     Dosage: 4 ML, BID
     Route: 048
     Dates: start: 201604, end: 201604

REACTIONS (3)
  - Abdominal discomfort [Recovered/Resolved]
  - Nasal congestion [Recovered/Resolved]
  - Vomiting [Recovered/Resolved]
